FAERS Safety Report 6457046-1 (Version None)
Quarter: 2009Q4

REPORT INFORMATION
  Report Type: 
  Country: None (occurrence: None)
  Receive Date: 20091125
  Receipt Date: 20091118
  Transmission Date: 20100525
  Serious: Yes (Other)
  Sender: FDA-Public Use
  Company Number: A0817744A

PATIENT
  Age: 62 Year
  Sex: Female

DRUGS (9)
  1. ADVAIR DISKUS 100/50 [Suspect]
     Indication: ASTHMA
     Dosage: 1PUFF TWICE PER DAY
     Route: 055
     Dates: start: 20050101
  2. VENTOLIN [Suspect]
     Indication: ASTHMA
     Dosage: 2PUFF AS REQUIRED
     Route: 055
     Dates: start: 20091028
  3. NEBULIZER [Concomitant]
  4. GLIPIZIDE [Concomitant]
  5. LIPITOR [Concomitant]
  6. LISINOPRIL [Concomitant]
  7. MUCINEX [Concomitant]
  8. COD LIVER OIL [Concomitant]
  9. VITAMIN E [Concomitant]

REACTIONS (5)
  - ASTHMA [None]
  - CANDIDIASIS [None]
  - COUGH [None]
  - INHALATION THERAPY [None]
  - SECRETION DISCHARGE [None]
